FAERS Safety Report 10559985 (Version 1)
Quarter: 2014Q4

REPORT INFORMATION
  Report Type: Spontaneous
  Country: US (occurrence: None)
  Receive Date: 20141031
  Receipt Date: 20141031
  Transmission Date: 20150529
  Serious: Yes (Hospitalization)
  Sender: FDA-Public Use
  Company Number: None

PATIENT
  Age: 61 Year
  Sex: Male
  Weight: 72.1 kg

DRUGS (1)
  1. NAPROXEN. [Suspect]
     Active Substance: NAPROXEN
     Indication: RENAL TUBULAR NECROSIS
     Route: 048
     Dates: start: 20130731, end: 20140530

REACTIONS (6)
  - Vomiting [None]
  - Orthostatic hypotension [None]
  - Dehydration [None]
  - Dizziness postural [None]
  - Nausea [None]
  - Syncope [None]

NARRATIVE: CASE EVENT DATE: 20140528
